FAERS Safety Report 17233508 (Version 1)
Quarter: 2020Q1

REPORT INFORMATION
  Report Type: Spontaneous
  Country: FR (occurrence: FR)
  Receive Date: 20200104
  Receipt Date: 20200104
  Transmission Date: 20200409
  Serious: Yes (Life-Threatening, Hospitalization, Other)
  Sender: FDA-Public Use
  Company Number: FR-AUROBINDO-AUR-APL-2020-000294

PATIENT
  Age: 79 Year
  Sex: Male
  Weight: 67 kg

DRUGS (2)
  1. PARACETAMOL [Suspect]
     Active Substance: ACETAMINOPHEN
     Indication: TOXICITY TO VARIOUS AGENTS
     Dosage: 17 GRAM
     Route: 048
     Dates: start: 20191203, end: 20191203
  2. LERCAN [Suspect]
     Active Substance: LERCANIDIPINE
     Indication: TOXICITY TO VARIOUS AGENTS
     Dosage: 60 MILLIGRAM
     Route: 048
     Dates: start: 20191203, end: 20191203

REACTIONS (6)
  - Coma [Recovered/Resolved]
  - Hypotension [Recovered/Resolved]
  - Vomiting [Recovered/Resolved]
  - Haemodynamic instability [Recovered/Resolved]
  - Nausea [Recovered/Resolved]
  - Somnolence [Recovered/Resolved]

NARRATIVE: CASE EVENT DATE: 20191203
